FAERS Safety Report 14295323 (Version 3)
Quarter: 2018Q2

REPORT INFORMATION
  Report Type: Spontaneous
  Country: US (occurrence: US)
  Receive Date: 20171218
  Receipt Date: 20180404
  Transmission Date: 20180711
  Serious: No
  Sender: FDA-Public Use
  Company Number: US-PFIZER INC-2017531339

PATIENT
  Age: 63 Year
  Sex: Female

DRUGS (1)
  1. XELJANZ XR [Suspect]
     Active Substance: TOFACITINIB CITRATE
     Dosage: 11 MG, DAILY (TAKE ONE TABLET BY MOUTH EVERY DAY)
     Route: 048
     Dates: start: 201709

REACTIONS (2)
  - Accidental overdose [Unknown]
  - Malaise [Recovering/Resolving]
